FAERS Safety Report 9854748 (Version 1)
Quarter: 2014Q1

REPORT INFORMATION
  Report Type: Spontaneous
  Country: US (occurrence: US)
  Receive Date: 20140130
  Receipt Date: 20140130
  Transmission Date: 20141002
  Serious: No
  Sender: FDA-Public Use
  Company Number: US-PFIZER INC-2014024583

PATIENT
  Age: 50 Year
  Sex: Female
  Weight: 63.49 kg

DRUGS (2)
  1. ADVIL ALLERGY SINUS [Suspect]
     Indication: SINUSITIS
     Dosage: 200MG/2MG/30MG, TWO TIMES A DAY (ONE IN THE MORNING AND ONE IN THE NIGHT)
     Route: 048
     Dates: start: 20140121, end: 20140123
  2. ADVIL ALLERGY SINUS [Suspect]
     Indication: HYPERSENSITIVITY

REACTIONS (5)
  - Dyspnoea [Unknown]
  - Urticaria [Recovering/Resolving]
  - Fatigue [Unknown]
  - Dizziness [Unknown]
  - Anxiety [Unknown]
